FAERS Safety Report 9888049 (Version 1)
Quarter: 2014Q1

REPORT INFORMATION
  Report Type: Spontaneous
  Country: FR (occurrence: FR)
  Receive Date: 20140211
  Receipt Date: 20140211
  Transmission Date: 20141002
  Serious: Yes (Hospitalization)
  Sender: FDA-Public Use
  Company Number: FR-SA-2014SA013218

PATIENT
  Age: 77 Year
  Sex: Female

DRUGS (12)
  1. LOVENOX [Suspect]
     Indication: PRODUCT USED FOR UNKNOWN INDICATION
     Route: 058
     Dates: start: 20131209, end: 20140107
  2. REVLIMID [Suspect]
     Indication: PLASMA CELL MYELOMA
     Route: 048
     Dates: start: 20131220, end: 20140107
  3. DEBRIDAT [Suspect]
     Indication: PRODUCT USED FOR UNKNOWN INDICATION
     Route: 048
     Dates: start: 20131209, end: 20140107
  4. SMECTA [Suspect]
     Indication: PRODUCT USED FOR UNKNOWN INDICATION
     Route: 048
     Dates: start: 20131229, end: 20140107
  5. DEXAMETHASONE [Concomitant]
     Indication: PLASMA CELL MYELOMA
     Route: 048
     Dates: start: 20131220
  6. LASILIX [Concomitant]
     Route: 048
  7. NEURONTIN [Concomitant]
     Route: 048
  8. LERCANIDIPINE [Concomitant]
     Route: 048
  9. CORDARONE [Concomitant]
  10. ZANEXTRA [Concomitant]
  11. PRADAXA [Concomitant]
  12. KLIPAL [Concomitant]

REACTIONS (1)
  - Rash maculo-papular [Recovered/Resolved]
